FAERS Safety Report 8965414 (Version 1)
Quarter: 2012Q4

REPORT INFORMATION
  Report Type: 
  Country: CH (occurrence: CH)
  Receive Date: 20121213
  Receipt Date: 20121213
  Transmission Date: 20130627
  Serious: Yes (Death, Other)
  Sender: FDA-Public Use
  Company Number: CH-CELGENEUS-151-21880-12120041

PATIENT

DRUGS (8)
  1. REVLIMID [Suspect]
     Indication: B-CELL LYMPHOMA
     Dosage: 10 Milligram
     Route: 048
  2. REVLIMID [Suspect]
     Dosage: 15 Milligram
     Route: 048
  3. REVLIMID [Suspect]
     Dosage: 20 Milligram
     Route: 048
  4. RITUXIMAB [Suspect]
     Indication: B-CELL LYMPHOMA
     Route: 041
  5. BENDAMUSTINE [Suspect]
     Indication: B-CELL LYMPHOMA
     Route: 041
  6. BENDAMUSTINE [Suspect]
     Dosage: 90 milligram/sq. meter
     Route: 041
  7. PARACETAMOL [Concomitant]
     Indication: DRUG USE FOR UNKNOWN INDICATION
     Route: 065
  8. ANTIHISTAMIN [Concomitant]
     Indication: DRUG USE FOR UNKNOWN INDICATION
     Route: 065

REACTIONS (24)
  - Death [Fatal]
  - Pneumonia [Fatal]
  - Troponin increased [Unknown]
  - Sinus tachycardia [Unknown]
  - Myocardial infarction [Unknown]
  - Atrial flutter [Unknown]
  - Arrhythmia supraventricular [Unknown]
  - Neutropenia [Unknown]
  - Febrile neutropenia [Unknown]
  - Thrombocytopenia [Unknown]
  - Fatigue [Unknown]
  - Rash [Unknown]
  - Disease progression [Unknown]
  - Peripheral sensory neuropathy [Unknown]
  - Dysphagia [Unknown]
  - Decreased appetite [Unknown]
  - Arachnoiditis [Unknown]
  - Muscular weakness [Unknown]
  - Headache [Unknown]
  - Anaemia [Unknown]
  - Pruritus [Unknown]
  - Nausea [Unknown]
  - Urinary tract infection [Unknown]
  - Chest pain [Unknown]
